FAERS Safety Report 6091064-0 (Version None)
Quarter: 2009Q1

REPORT INFORMATION
  Report Type: 
  Country: None (occurrence: None)
  Receive Date: 20090225
  Receipt Date: 20090218
  Transmission Date: 20090719
  Serious: Yes (Hospitalization, Other)
  Sender: FDA-Public Use
  Company Number: BR-BAYER-200816717LA

PATIENT
  Age: 26 Year
  Sex: Female

DRUGS (3)
  1. BETAFERON [Suspect]
     Indication: MULTIPLE SCLEROSIS
     Route: 058
     Dates: start: 20060101, end: 20070501
  2. BETAFERON [Suspect]
     Route: 058
     Dates: start: 20070601, end: 20090214
  3. BETAFERON [Suspect]
     Route: 058
     Dates: start: 20090218

REACTIONS (14)
  - AGGRESSION [None]
  - ANOREXIA [None]
  - ASTHENIA [None]
  - COORDINATION ABNORMAL [None]
  - DEPRESSION [None]
  - DYSPNOEA [None]
  - FATIGUE [None]
  - INJECTION SITE ERYTHEMA [None]
  - MEMORY IMPAIRMENT [None]
  - MULTIPLE SCLEROSIS [None]
  - RESTLESS LEGS SYNDROME [None]
  - SYNCOPE [None]
  - URINARY INCONTINENCE [None]
  - WEIGHT DECREASED [None]
